FAERS Safety Report 6137081-3 (Version None)
Quarter: 2009Q1

REPORT INFORMATION
  Report Type: 
  Country: None (occurrence: None)
  Receive Date: 20090330
  Receipt Date: 20090318
  Transmission Date: 20090719
  Serious: Yes (Hospitalization)
  Sender: FDA-Public Use
  Company Number: HU-ROCHE-528395

PATIENT
  Sex: Female
  Weight: 75.8 kg

DRUGS (13)
  1. PEG-INTERFERON ALFA 2A (RO 25-8310) [Suspect]
     Dosage: DOSE BLINDED TILL 12 WEEKS
     Route: 058
     Dates: start: 20070830
  2. PEG-INTERFERON ALFA 2A (RO 25-8310) [Suspect]
     Route: 058
  3. RIBAVIRIN [Suspect]
     Dosage: DOSE BLINDED.
     Route: 048
     Dates: start: 20070830
  4. ZOLPIDEM [Concomitant]
     Dates: start: 20050215
  5. HYDROCHLOROTHIAZIDE [Concomitant]
     Dates: start: 20040726
  6. AMILORID [Concomitant]
     Dates: start: 20040726
  7. NIFEDIPINE [Concomitant]
     Dates: start: 20040726, end: 20071025
  8. METOPROLOL [Concomitant]
     Dates: start: 20040726
  9. PIRACETAM [Concomitant]
     Dates: start: 20030815
  10. ACETYLSALICYLIC ACID [Concomitant]
     Dates: start: 20000630
  11. ISOSORBIDE MONONITRATE [Concomitant]
     Dates: start: 20040726
  12. FUROSEMID [Concomitant]
     Dates: start: 20040726
  13. CLONAZEPAM [Concomitant]
     Dates: start: 19930630

REACTIONS (1)
  - ANAEMIA [None]
